FAERS Safety Report 20199716 (Version 2)
Quarter: 2022Q1

REPORT INFORMATION
  Report Type: Report from Study
  Country: US (occurrence: US)
  Receive Date: 20211217
  Receipt Date: 20220217
  Transmission Date: 20220423
  Serious: Yes (Death, Hospitalization, Other)
  Sender: FDA-Public Use
  Company Number: US-HBP-2021US024019

PATIENT
  Sex: Male

DRUGS (3)
  1. VALCHLOR [Suspect]
     Active Substance: MECHLORETHAMINE
     Indication: Cutaneous T-cell lymphoma
     Dosage: THIN FILM, 5/WEEK
     Route: 061
     Dates: end: 20211205
  2. ATORVASTATIN CALCIUM [Concomitant]
     Active Substance: ATORVASTATIN CALCIUM
     Dosage: UNK, UNKNOWN
     Route: 065
  3. LISINOPRIL [Concomitant]
     Active Substance: LISINOPRIL
     Dosage: UNK, UNKNOWN
     Route: 065

REACTIONS (13)
  - COVID-19 pneumonia [Fatal]
  - Cerebrovascular accident [Fatal]
  - Dementia [Not Recovered/Not Resolved]
  - Off label use [Unknown]
  - Confusional state [Not Recovered/Not Resolved]
  - Malaise [Unknown]
  - Incoherent [Not Recovered/Not Resolved]
  - Intentional dose omission [Unknown]
  - Fall [Recovered/Resolved]
  - Head injury [Recovered/Resolved]
  - Syncope [Recovered/Resolved]
  - Illness [Not Recovered/Not Resolved]
  - Dizziness [Not Recovered/Not Resolved]

NARRATIVE: CASE EVENT DATE: 20210101
